FAERS Safety Report 21087972 (Version 3)
Quarter: 2022Q4

REPORT INFORMATION
  Report Type: Report from Study
  Country: US (occurrence: US)
  Receive Date: 20220715
  Receipt Date: 20221028
  Transmission Date: 20230113
  Serious: Yes (Other)
  Sender: FDA-Public Use
  Company Number: US-BRISTOL-MYERS SQUIBB COMPANY-2022-014090

PATIENT
  Age: 56 Year
  Sex: Male
  Weight: 86.18 kg

DRUGS (3)
  1. REVLIMID [Suspect]
     Active Substance: LENALIDOMIDE
     Indication: Plasma cell myeloma
     Dosage: 10MG DAILY BY MOUTH 21 OF 35 DAYS
     Route: 048
     Dates: start: 201805
  2. REVLIMID [Suspect]
     Active Substance: LENALIDOMIDE
     Dosage: 25 MG
     Route: 048
     Dates: start: 201805
  3. REVLIMID [Suspect]
     Active Substance: LENALIDOMIDE
     Dosage: TAKE 1 CAPSULE DAILY FOR 21 DAYS ON THEN 14 DAYS OFF, ON DAYS 1 THROUGH 21 OF A 35 DAYS CHEMOTHERAPY
     Route: 048
     Dates: start: 201805

REACTIONS (8)
  - Pruritus [Unknown]
  - Erythema [Unknown]
  - Swelling [Unknown]
  - Skin irritation [Unknown]
  - Hypersensitivity [Unknown]
  - Off label use [Unknown]
  - Body temperature decreased [Unknown]
  - Sensitive skin [Unknown]

NARRATIVE: CASE EVENT DATE: 20190101
